FAERS Safety Report 14011639 (Version 1)
Quarter: 2017Q3

REPORT INFORMATION
  Report Type: Spontaneous
  Country: US (occurrence: US)
  Receive Date: 20170926
  Receipt Date: 20170926
  Transmission Date: 20171128
  Serious: Yes (Disabling)
  Sender: FDA-Public Use
  Company Number: None

PATIENT
  Sex: Male
  Weight: 96.3 kg

DRUGS (5)
  1. MULTI VITAMINS [Concomitant]
     Active Substance: VITAMINS
  2. SIMVISTATIN [Concomitant]
     Active Substance: SIMVASTATIN
  3. PROTONICS [Concomitant]
  4. ENOXAPARIN SODIUM. [Suspect]
     Active Substance: ENOXAPARIN SODIUM
     Indication: DEEP VEIN THROMBOSIS
     Dosage: ?          QUANTITY:1 INJECTION(S);?
     Route: 058
  5. ALLIPURINOL [Concomitant]

REACTIONS (1)
  - Dizziness [None]

NARRATIVE: CASE EVENT DATE: 20170825
